FAERS Safety Report 5963793-8 (Version None)
Quarter: 2008Q4

REPORT INFORMATION
  Report Type: 
  Country: None (occurrence: None)
  Receive Date: 20081121
  Receipt Date: 20081121
  Transmission Date: 20090506
  Serious: Yes (Life-Threatening, Hospitalization)
  Sender: FDA-Public Use
  Company Number: None

PATIENT
  Age: 39 Year
  Sex: Female
  Weight: 60.2 kg

DRUGS (16)
  1. HEPARIN [Suspect]
     Indication: AORTIC VALVE REPAIR
     Dosage: SQ HEPARIN 98
     Route: 058
     Dates: start: 20080726, end: 20080728
  2. HEPARIN [Suspect]
     Indication: ATRIAL FIBRILLATION
     Dosage: SQ HEPARIN 98
     Route: 058
     Dates: start: 20080726, end: 20080728
  3. HEPARIN [Suspect]
     Indication: MITRAL VALVE REPAIR
     Dosage: SQ HEPARIN 98
     Route: 058
     Dates: start: 20080726, end: 20080728
  4. HEPARIN [Suspect]
     Dosage: IV
     Route: 042
     Dates: start: 20080728, end: 20080729
  5. APAP TAB [Concomitant]
  6. AMPICILLIN [Concomitant]
  7. ENALAPRIL MALEATE [Concomitant]
  8. LANSOPRAZOLE [Concomitant]
  9. LOSARTAN POTASSIUM [Concomitant]
  10. MGS04 [Concomitant]
  11. MEGACE [Concomitant]
  12. TRAMADOL HCL [Concomitant]
  13. NYSTATIN [Concomitant]
  14. OXYBUTYNIN CHLORIDE [Concomitant]
  15. COMPAZINE [Concomitant]
  16. TEMAZEPAM [Concomitant]

REACTIONS (1)
  - HEPARIN-INDUCED THROMBOCYTOPENIA [None]
